FAERS Safety Report 8902976 (Version 1)
Quarter: 2012Q4

REPORT INFORMATION
  Report Type: 
  Country: TN (occurrence: TN)
  Receive Date: 20121113
  Receipt Date: 20121113
  Transmission Date: 20130627
  Serious: Yes (Other)
  Sender: FDA-Public Use
  Company Number: TN-PFIZER INC-2012280045

PATIENT
  Age: 11 Year
  Sex: Female

DRUGS (4)
  1. VORICONAZOLE [Suspect]
  2. FLUDARABINE [Concomitant]
     Dosage: 120 mg/m2, UNK
  3. CYCLOPHOSPHAMIDE [Concomitant]
     Dosage: 120 mg/m2, UNK
  4. ANTITHYMOCYTE IMMUNOGLOBULIN [Concomitant]
     Dosage: 7 mg/kg, UNK

REACTIONS (2)
  - Zygomycosis [Recovering/Resolving]
  - Gingivitis ulcerative [Recovering/Resolving]
